FAERS Safety Report 4804437-8 (Version None)
Quarter: 2005Q4

REPORT INFORMATION
  Report Type: 
  Country: None (occurrence: None)
  Receive Date: 20051020
  Receipt Date: 20051013
  Transmission Date: 20060501
  Serious: Yes (Hospitalization)
  Sender: FDA-Public Use
  Company Number: FR-GLAXOSMITHKLINE-B0397364A

PATIENT
  Age: 44 Year
  Sex: Male
  Weight: 65 kg

DRUGS (8)
  1. KIVEXA [Suspect]
     Indication: HIV INFECTION
     Dosage: 1UNIT PER DAY
     Route: 048
     Dates: start: 20050825, end: 20050920
  2. NORVIR [Concomitant]
     Indication: HIV INFECTION
     Route: 048
     Dates: start: 20050817
  3. REYATAZ [Concomitant]
     Indication: HIV INFECTION
     Route: 048
     Dates: start: 20050825
  4. MALOCIDE [Concomitant]
     Route: 048
     Dates: start: 20050817
  5. BACTRIM [Concomitant]
     Dosage: 8UNIT PER DAY
     Route: 048
  6. ADIAZINE [Concomitant]
     Dosage: 8UNIT PER DAY
     Route: 048
  7. LEXOMIL [Concomitant]
     Route: 048
  8. LEDERFOLINE [Concomitant]
     Route: 065

REACTIONS (4)
  - ASTHENIA [None]
  - CHILLS [None]
  - MYALGIA [None]
  - PYREXIA [None]
